FAERS Safety Report 18097580 (Version 2)
Quarter: 2020Q3

REPORT INFORMATION
  Report Type: Other
  Country: ES (occurrence: ES)
  Receive Date: 20200730
  Receipt Date: 20200811
  Transmission Date: 20201103
  Serious: Yes (Hospitalization)
  Sender: FDA-Public Use
  Company Number: ES-CELLTRION INC.-2020ES024787

PATIENT

DRUGS (4)
  1. RITUXIMAB (UNKNOWN) [Suspect]
     Active Substance: RITUXIMAB
     Indication: B-CELL LYMPHOMA
     Dosage: 375 MG/M2 (DATE OF LAST DOSE OF RITUXIMAB PRIOR TO EVENT: 26/SEP2019 WAS 375 MG/M2,1 IN 8 WEEKS)
     Route: 042
     Dates: start: 20180519, end: 20191212
  2. IBRUTINIB [Suspect]
     Active Substance: IBRUTINIB
     Dosage: UNK
     Route: 048
     Dates: start: 20180519, end: 20191122
  3. IBRUTINIB [Suspect]
     Active Substance: IBRUTINIB
     Indication: B-CELL LYMPHOMA
     Dosage: UNK, DAILY
     Route: 048
     Dates: start: 20180514, end: 20181119
  4. IBRUTINIB [Suspect]
     Active Substance: IBRUTINIB
     Dosage: UNK, DAILY (DATE OF LAST DOSE OF IBRUTINIB PRIOR TO EVENT: 21/NOV/2019)
     Route: 048
     Dates: start: 20180514, end: 20191212

REACTIONS (3)
  - Acute kidney injury [Recovered/Resolved]
  - Cardiac failure congestive [Not Recovered/Not Resolved]
  - Urinary tract infection [Recovered/Resolved]

NARRATIVE: CASE EVENT DATE: 20191119
